FAERS Safety Report 15048792 (Version 1)
Quarter: 2018Q2

REPORT INFORMATION
  Report Type: Spontaneous
  Country: US (occurrence: US)
  Receive Date: 20180622
  Receipt Date: 20180622
  Transmission Date: 20180711
  Serious: No
  Sender: FDA-Public Use
  Company Number: US-PFIZER INC-2018252642

PATIENT
  Age: 67 Year
  Sex: Female

DRUGS (6)
  1. MEDROL [Suspect]
     Active Substance: METHYLPREDNISOLONE
     Indication: ARTHRALGIA
     Dosage: UNK  (FIRST DAY TAKE ALL SIX TABLETS AT ONE TIME)
  2. MEDROL [Suspect]
     Active Substance: METHYLPREDNISOLONE
     Dosage: UNK (NEXT DAY: ONE TABLET BEFORE BREAKFAST, AFTER LUNCH, AFTER SUPPER, AND THEN AT BEDTIME)
  3. MEDROL [Suspect]
     Active Substance: METHYLPREDNISOLONE
     Dosage: UNK (FOURTH DAY: ONE TABLET BEFORE BREAKFAST, ONE AFTER LUNCH, AND ONE AT BEDTIME)
  4. MEDROL [Suspect]
     Active Substance: METHYLPREDNISOLONE
     Dosage: UNK (FIFTH DAY: ONE TABLET BEFORE BREAKFAST AND ONE AT BEDTIME)
  5. MEDROL [Suspect]
     Active Substance: METHYLPREDNISOLONE
     Dosage: UNK (SIXTH DAY: ONE TABLET BEFORE BREAKFAST AND THAT IS ALL)
  6. MEDROL [Suspect]
     Active Substance: METHYLPREDNISOLONE
     Indication: STEROID THERAPY
     Dosage: UNK (SECOND DAY: ONE TABLET BEFORE BREAKFAST, ONE AFTER LUNCH, AND SUPPER, TWO TABLETS AT BEDTIME)

REACTIONS (1)
  - Drug effect decreased [Unknown]
